FAERS Safety Report 7242175-5 (Version None)
Quarter: 2011Q1

REPORT INFORMATION
  Report Type: 
  Country: None (occurrence: None)
  Receive Date: 20110124
  Receipt Date: 20101216
  Transmission Date: 20110831
  Serious: Yes (Hospitalization)
  Sender: FDA-Public Use
  Company Number: PHHY2010JP59837

PATIENT
  Sex: Female

DRUGS (11)
  1. AFINITOR [Suspect]
     Dosage: 10 MG DAILY
     Dates: start: 20100910, end: 20101003
  2. LASIX [Concomitant]
     Dosage: 20 MG, UNK
     Route: 048
     Dates: start: 20100510
  3. SENNOSIDE [Concomitant]
     Dosage: 12 MG
     Route: 048
     Dates: start: 20100910
  4. NOVAMIN [Concomitant]
     Dosage: 15 MG
     Route: 048
     Dates: start: 20100910
  5. OXYCONTIN [Concomitant]
     Indication: RENAL CELL CARCINOMA
     Dosage: 10 MG
     Route: 048
     Dates: start: 20100910
  6. AFINITOR [Suspect]
     Indication: RENAL CELL CARCINOMA
     Dosage: 10 NG DAILY
     Route: 048
     Dates: start: 20100716, end: 20100827
  7. SUNITINIB MALATE [Concomitant]
     Indication: RENAL CELL CARCINOMA
     Dosage: 25 MG, UNK
     Route: 048
     Dates: start: 20100216, end: 20100506
  8. MAGMITT KENEI [Concomitant]
     Dosage: 990 MG
     Route: 048
     Dates: start: 20100910
  9. OLMETEC [Concomitant]
     Dosage: 20 MG, UNK
     Route: 048
     Dates: start: 20100323, end: 20100801
  10. GASLON [Concomitant]
     Dosage: 4 MG, UNK
     Route: 048
     Dates: start: 20100615
  11. AMLODIPINE BESILATE [Concomitant]
     Dosage: 5 MG, UNK
     Route: 048
     Dates: start: 20100607, end: 20100812

REACTIONS (2)
  - THROMBOPHLEBITIS [None]
  - OEDEMA PERIPHERAL [None]
